FAERS Safety Report 22146278 (Version 1)
Quarter: 2023Q1

REPORT INFORMATION
  Report Type: Spontaneous
  Country: US (occurrence: US)
  Receive Date: 20230328
  Receipt Date: 20230328
  Transmission Date: 20230418
  Serious: No
  Sender: FDA-Public Use
  Company Number: US-BAYER-2023A040296

PATIENT
  Age: 37 Year
  Sex: Male

DRUGS (2)
  1. CLARITIN [Suspect]
     Active Substance: LORATADINE
     Indication: Hypersensitivity
     Dosage: 1 TABLET YESTERDAY MORNING, 1 TABLET YESTERDAY NIGHT AND 1 TABLET TODAY IN THE MORNING
     Route: 048
     Dates: start: 20230322, end: 20230323
  2. CLARITIN [Suspect]
     Active Substance: LORATADINE
     Indication: Nasopharyngitis

REACTIONS (1)
  - Incorrect dosage administered [None]

NARRATIVE: CASE EVENT DATE: 20230322
